FAERS Safety Report 19679776 (Version 1)
Quarter: 2021Q3

REPORT INFORMATION
  Report Type: Spontaneous
  Country: US (occurrence: US)
  Receive Date: 20210810
  Receipt Date: 20210810
  Transmission Date: 20211014
  Serious: Yes (Other)
  Sender: FDA-Public Use
  Company Number: US-BAYER-2021-188965

PATIENT

DRUGS (1)
  1. ALEVEX [Suspect]
     Active Substance: CAMPHOR (SYNTHETIC)\MENTHOL
     Dosage: UNK
     Route: 048

REACTIONS (4)
  - Drug ineffective [Unknown]
  - Dyspnoea [Unknown]
  - Product odour abnormal [Unknown]
  - Choking [Unknown]
